FAERS Safety Report 6839527-1 (Version None)
Quarter: 2010Q3

REPORT INFORMATION
  Report Type: 
  Country: None (occurrence: None)
  Receive Date: 20100714
  Receipt Date: 20091125
  Transmission Date: 20110219
  Serious: No
  Sender: FDA-Public Use
  Company Number: A0832934A

PATIENT
  Age: 58 Year
  Sex: Female

DRUGS (20)
  1. FLOVENT [Suspect]
     Indication: ASTHMA
     Dosage: 4PUFF TWICE PER DAY
     Route: 055
     Dates: start: 20000101
  2. ATROVENT [Concomitant]
  3. SEREVENT [Concomitant]
  4. VENTOLIN [Concomitant]
  5. DUONEB [Concomitant]
  6. PROTONIX [Concomitant]
  7. OTHER MEDICATIONS [Concomitant]
  8. STOOL SOFTENER [Concomitant]
  9. METAMUCIL-2 [Concomitant]
  10. NASONEX [Concomitant]
  11. XANAX [Concomitant]
  12. BENADRYL [Concomitant]
  13. MUCINEX [Concomitant]
  14. MULTI-VITAMIN [Concomitant]
  15. ZINC [Concomitant]
  16. VITAMIN C [Concomitant]
  17. OTHER MEDICATIONS [Concomitant]
  18. SOY [Concomitant]
  19. CHLOR-TRIMETON [Concomitant]
  20. UNKNOWN STOMACH MEDICATION [Concomitant]

REACTIONS (4)
  - APHONIA [None]
  - DRUG ADMINISTRATION ERROR [None]
  - FUNGAL INFECTION [None]
  - LARYNGITIS [None]
